FAERS Safety Report 19488554 (Version 1)
Quarter: 2021Q3

REPORT INFORMATION
  Report Type: Spontaneous
  Country: BR (occurrence: BR)
  Receive Date: 20210702
  Receipt Date: 20210702
  Transmission Date: 20211014
  Serious: Yes (Other)
  Sender: FDA-Public Use
  Company Number: BR-ORGANON-O2106BRA002245

PATIENT
  Age: 82 Year
  Sex: Female
  Weight: 60 kg

DRUGS (5)
  1. CONCOR [Concomitant]
     Active Substance: BISOPROLOL FUMARATE
     Indication: CARDIAC DISORDER
     Dosage: 1 TABLET ? 2.5 MG ? IN THE MORNING BUT THE DOSAGE WAS REDUCED
     Route: 048
  2. EZETROL [Suspect]
     Active Substance: EZETIMIBE
     Indication: BLOOD CHOLESTEROL INCREASED
     Dosage: 1 TABLET ? 10 MG, AT NIGHT
     Route: 048
     Dates: start: 2013
  3. ACERTANLO [Concomitant]
     Active Substance: AMLODIPINE BESYLATE\PERINDOPRIL ARGININE
     Indication: HYPERTENSION
     Dosage: 1 TABLET ? 3.5 / 2.5 MG ? IN THE MORNING
     Route: 048
     Dates: start: 2018
  4. SOMALIUM [Concomitant]
     Active Substance: BROMAZEPAM
     Indication: PANIC DISORDER
     Dosage: 1 TABLET ? 3 MG ? AT NIGHT
     Route: 048
  5. PURAN [Concomitant]
     Active Substance: LEVOTHYROXINE SODIUM
     Indication: AUTOIMMUNE THYROIDITIS
     Dosage: 62.5 MICROGRAM

REACTIONS (15)
  - Depression [Unknown]
  - Urticaria [Unknown]
  - Pain [Unknown]
  - Breast cancer [Recovered/Resolved]
  - Fibromyalgia [Unknown]
  - Gingival bleeding [Recovering/Resolving]
  - Osteoporosis [Unknown]
  - Alopecia [Unknown]
  - Bradycardia [Unknown]
  - Nephrolithiasis [Not Recovered/Not Resolved]
  - Fall [Recovering/Resolving]
  - Gastrooesophageal reflux disease [Unknown]
  - Administration site hypersensitivity [Unknown]
  - Oral candidiasis [Unknown]
  - Pain [Recovering/Resolving]

NARRATIVE: CASE EVENT DATE: 2015
